FAERS Safety Report 12595260 (Version 1)
Quarter: 2016Q3

REPORT INFORMATION
  Report Type: Spontaneous
  Country: US (occurrence: US)
  Receive Date: 20160726
  Receipt Date: 20160726
  Transmission Date: 20161109
  Serious: No
  Sender: FDA-Public Use
  Company Number: US-ENDO PHARMACEUTICALS INC.-2015-003251

PATIENT
  Age: 56 Year
  Sex: Male
  Weight: 95.79 kg

DRUGS (5)
  1. LISINOPRIL TABLETS [Suspect]
     Active Substance: LISINOPRIL
     Indication: HYPERTENSION
     Route: 048
     Dates: start: 20131230
  2. LISINOPRIL TABLETS [Suspect]
     Active Substance: LISINOPRIL
     Route: 048
  3. JUXTAPID [Suspect]
     Active Substance: LOMITAPIDE MESYLATE
     Indication: TYPE IIA HYPERLIPIDAEMIA
     Route: 048
     Dates: start: 20140207, end: 2014
  4. JUXTAPID [Suspect]
     Active Substance: LOMITAPIDE MESYLATE
     Route: 048
     Dates: start: 20150114
  5. JUXTAPID [Suspect]
     Active Substance: LOMITAPIDE MESYLATE
     Route: 048
     Dates: start: 2014, end: 2014

REACTIONS (6)
  - Alanine aminotransferase increased [Unknown]
  - Aspartate aminotransferase increased [Unknown]
  - Weight decreased [Not Recovered/Not Resolved]
  - Dizziness [Not Recovered/Not Resolved]
  - Hypotension [Recovered/Resolved]
  - Nausea [Recovered/Resolved]

NARRATIVE: CASE EVENT DATE: 20131230
